FAERS Safety Report 23580248 (Version 2)
Quarter: 2024Q1

REPORT INFORMATION
  Report Type: Spontaneous
  Country: KR (occurrence: KR)
  Receive Date: 20240229
  Receipt Date: 20240312
  Transmission Date: 20240410
  Serious: Yes (Other)
  Sender: FDA-Public Use
  Company Number: KR-MYLANLABS-2024M1018353

PATIENT

DRUGS (3)
  1. ZOLOFT [Suspect]
     Active Substance: SERTRALINE HYDROCHLORIDE
     Indication: Depression
     Dosage: 100 MILLIGRAM, QD (EVERY MORNING)
     Route: 048
     Dates: end: 2024
  2. ZOLOFT [Suspect]
     Active Substance: SERTRALINE HYDROCHLORIDE
     Dosage: 125 MILLIGRAM, QD
     Route: 048
     Dates: start: 2024
  3. ESCITALOPRAM [Suspect]
     Active Substance: ESCITALOPRAM OXALATE
     Indication: Depression
     Dosage: 200 MILLIGRAM, QD
     Route: 065
     Dates: end: 2024

REACTIONS (5)
  - Epilepsy [Unknown]
  - Lethargy [Unknown]
  - Tremor [Unknown]
  - Insomnia [Unknown]
  - Somnolence [Recovered/Resolved]
